FAERS Safety Report 21728179 (Version 1)
Quarter: 2022Q4

REPORT INFORMATION
  Report Type: Spontaneous
  Country: US (occurrence: None)
  Receive Date: 20221213
  Receipt Date: 20221213
  Transmission Date: 20230112
  Serious: No
  Sender: FDA-Public Use
  Company Number: None

PATIENT
  Age: 66 Year
  Sex: Female
  Weight: 64.41 kg

DRUGS (15)
  1. DULERA [Suspect]
     Active Substance: FORMOTEROL FUMARATE DIHYDRATE\MOMETASONE FUROATE
     Indication: Respiratory disorder
     Dosage: FREQUENCY : TWICE A DAY;  2 PUFFS?
     Route: 048
     Dates: start: 20220801, end: 20221031
  2. SYNTHROID [Concomitant]
     Active Substance: LEVOTHYROXINE SODIUM
  3. HYDROCODONE [Concomitant]
  4. AMOXICILLIN [Concomitant]
  5. HERBALS [Concomitant]
     Active Substance: HERBALS
  6. PRASTERONE [Concomitant]
     Active Substance: PRASTERONE
  7. FIBRO RELIEF [Concomitant]
  8. VITAMIN D NOS [Concomitant]
     Active Substance: VITAMIN D NOS
  9. VITAMIN C [Concomitant]
     Active Substance: ASCORBIC ACID
  10. MAGNESIUM [Concomitant]
     Active Substance: MAGNESIUM
  11. VITAMIN B12 [Concomitant]
     Active Substance: CYANOCOBALAMIN
  12. VITAMIN B COMPLEX [Concomitant]
     Active Substance: CYANOCOBALAMIN\DEXPANTHENOL\NIACINAMIDE\PYRIDOXINE HYDROCHLORIDE\RIBOFLAVIN 5^-PHOSPHATE SODIUM\THIA
  13. HERBALS [Concomitant]
     Active Substance: HERBALS
  14. PROBIOTICS NOS [Concomitant]
     Active Substance: PROBIOTICS NOS
  15. COENZYME Q10 [Concomitant]
     Active Substance: DIETARY SUPPLEMENT\UBIDECARENONE

REACTIONS (7)
  - Pain [None]
  - Dyspepsia [None]
  - Decreased appetite [None]
  - Weight decreased [None]
  - Asthenia [None]
  - Near death experience [None]
  - Loss of employment [None]

NARRATIVE: CASE EVENT DATE: 20220801
